FAERS Safety Report 5102213-2 (Version None)
Quarter: 2006Q3

REPORT INFORMATION
  Report Type: 
  Country: None (occurrence: None)
  Receive Date: 20060912
  Receipt Date: 20060515
  Transmission Date: 20061208
  Serious: Yes (Hospitalization)
  Sender: FDA-Public Use
  Company Number: BEWYE628016MAY06

PATIENT
  Age: 71 Year
  Sex: Female

DRUGS (7)
  1. ENBREL [Suspect]
     Indication: ANKYLOSING SPONDYLITIS
     Route: 058
     Dates: start: 20060101, end: 20060428
  2. ACCUPRIL [Concomitant]
     Route: 048
  3. ALDACTONE [Concomitant]
     Route: 048
  4. MOLSIDOMINE [Concomitant]
     Route: 048
  5. BURINEX [Concomitant]
     Route: 048
  6. ASAFLOW [Concomitant]
     Route: 048
  7. LANITOP [Concomitant]
     Route: 048

REACTIONS (2)
  - MYELODYSPLASTIC SYNDROME [None]
  - PANCYTOPENIA [None]
